FAERS Safety Report 6709398-2 (Version None)
Quarter: 2010Q2

REPORT INFORMATION
  Report Type: 
  Country: None (occurrence: None)
  Receive Date: 20100503
  Receipt Date: 20100503
  Transmission Date: 20101027
  Serious: Yes (Other)
  Sender: FDA-Public Use
  Company Number: None

PATIENT
  Sex: Female
  Weight: 16.7831 kg

DRUGS (2)
  1. CHILDREN'S MOTRIN [Suspect]
     Indication: PYREXIA
     Dosage: 1-1/2 TSP EVERY 6 HOURS PO
     Route: 048
     Dates: start: 20100427, end: 20100430
  2. TYLENOL-500 [Concomitant]

REACTIONS (7)
  - GENERAL PHYSICAL HEALTH DETERIORATION [None]
  - HEART RATE INCREASED [None]
  - HYPERHIDROSIS [None]
  - PRODUCT QUALITY ISSUE [None]
  - PYREXIA [None]
  - VIRAL INFECTION [None]
  - VOMITING [None]
